FAERS Safety Report 18382092 (Version 1)
Quarter: 2020Q4

REPORT INFORMATION
  Report Type: Spontaneous
  Country: US (occurrence: US)
  Receive Date: 20201013
  Receipt Date: 20201013
  Transmission Date: 20210114
  Serious: Yes (Life-Threatening, Hospitalization)
  Sender: FDA-Public Use
  Company Number: None

PATIENT
  Age: 63 Year
  Sex: Female
  Weight: 87.75 kg

DRUGS (1)
  1. TAMOXIFEN [Suspect]
     Active Substance: TAMOXIFEN
     Indication: LOBULAR BREAST CARCINOMA IN SITU
     Route: 048
     Dates: start: 20200315, end: 20200531

REACTIONS (3)
  - Pulmonary embolism [None]
  - Product complaint [None]
  - Feeling abnormal [None]

NARRATIVE: CASE EVENT DATE: 20200531
